FAERS Safety Report 16607151 (Version 1)
Quarter: 2019Q3

REPORT INFORMATION
  Report Type: Spontaneous
  Country: US (occurrence: US)
  Receive Date: 20190722
  Receipt Date: 20190722
  Transmission Date: 20191004
  Serious: Yes (Other)
  Sender: FDA-Public Use
  Company Number: US-ABBVIE-19K-163-2859042-00

PATIENT
  Age: 73 Year
  Sex: Female

DRUGS (3)
  1. SYNTHROID [Suspect]
     Active Substance: LEVOTHYROXINE SODIUM
     Indication: PRODUCT USED FOR UNKNOWN INDICATION
     Route: 065
  2. TIROSINT [Suspect]
     Active Substance: LEVOTHYROXINE SODIUM
     Indication: HYPOTHYROIDISM
     Route: 048
     Dates: start: 201903, end: 20190314
  3. TIROSINT [Suspect]
     Active Substance: LEVOTHYROXINE SODIUM
     Route: 048
     Dates: start: 20190314

REACTIONS (12)
  - Knee arthroplasty [Unknown]
  - Balance disorder [Not Recovered/Not Resolved]
  - Head discomfort [Not Recovered/Not Resolved]
  - Insomnia [Unknown]
  - Spinal fusion surgery [Unknown]
  - Cardiac flutter [Unknown]
  - Fatigue [Unknown]
  - Lymphoedema [Unknown]
  - Polycythaemia vera [Unknown]
  - Hyperhidrosis [Unknown]
  - Skin cancer [Unknown]
  - Urticaria [Unknown]

NARRATIVE: CASE EVENT DATE: 2001
